FAERS Safety Report 6725518-8 (Version None)
Quarter: 2010Q2

REPORT INFORMATION
  Report Type: 
  Country: None (occurrence: None)
  Receive Date: 20100514
  Receipt Date: 20100504
  Transmission Date: 20101027
  Serious: Yes (Death, Other)
  Sender: FDA-Public Use
  Company Number: US-SANOFI-AVENTIS-2010SA026346

PATIENT
  Age: 63 Year
  Sex: Male
  Weight: 87.5 kg

DRUGS (27)
  1. PRIMACOR [Suspect]
     Route: 041
     Dates: start: 20071019
  2. PRIMACOR [Suspect]
     Route: 041
     Dates: start: 20071001
  3. PRIMACOR [Suspect]
     Route: 041
     Dates: start: 20071001, end: 20071001
  4. HEPARIN SODIUM [Suspect]
     Route: 042
     Dates: start: 20070920, end: 20071113
  5. HEPARIN LOCK FLUSH [Suspect]
     Route: 042
     Dates: start: 20071018, end: 20071113
  6. PREDNISONE [Concomitant]
  7. COENZYME Q10 [Concomitant]
  8. COREG [Concomitant]
  9. CORDARONE [Concomitant]
  10. CALCIUM WITH VITAMIN D [Concomitant]
  11. SPIRONOLACTONE [Concomitant]
  12. WARFARIN SODIUM [Concomitant]
  13. METOLAZONE [Concomitant]
  14. VITAMIN B-12 [Concomitant]
  15. POTASSIUM CHLORIDE [Concomitant]
  16. LEVOTHYROXINE SODIUM [Concomitant]
  17. METHOTREXATE [Concomitant]
  18. FOSAMAX [Concomitant]
  19. PROPOXYPHENE NAPSYLATE [Concomitant]
  20. ALLOPURINOL [Concomitant]
  21. COLCHICINE [Concomitant]
  22. SILDENAFIL [Concomitant]
  23. FOLIC ACID [Concomitant]
  24. FUROSEMIDE [Concomitant]
  25. ENALAPRIL MALEATE [Concomitant]
  26. DIGITEK [Concomitant]
  27. LIPITOR [Concomitant]

REACTIONS (8)
  - BLOOD CREATININE INCREASED [None]
  - CARDIOGENIC SHOCK [None]
  - CARDIOMYOPATHY [None]
  - HYPOTENSION [None]
  - RENAL FAILURE [None]
  - SEPTIC SHOCK [None]
  - STAPHYLOCOCCAL BACTERAEMIA [None]
  - URINE OUTPUT DECREASED [None]
